FAERS Safety Report 22533897 (Version 1)
Quarter: 2023Q2

REPORT INFORMATION
  Report Type: Spontaneous
  Country: DK (occurrence: DK)
  Receive Date: 20230608
  Receipt Date: 20230608
  Transmission Date: 20230722
  Serious: Yes (Other)
  Sender: FDA-Public Use
  Company Number: DK-AMGEN-DNKSP2023092716

PATIENT
  Age: 11 Year
  Sex: Female

DRUGS (7)
  1. XGEVA [Suspect]
     Active Substance: DENOSUMAB
     Indication: Bone giant cell tumour
     Dosage: 70 MILLIGRAM, Q4WK WITH LOADING DOSE ON DAYS 8 AND 15 OF THE FIRST CYCLE
     Route: 065
  2. XGEVA [Suspect]
     Active Substance: DENOSUMAB
     Dosage: 70 MILLIGRAM, Q4WK WITH LOADING DOSE ON DAYS 8 AND 15 OF THE FIRST CYCLE
     Route: 065
  3. CALCIUM CARBONATE [Concomitant]
     Active Substance: CALCIUM CARBONATE
     Indication: Supplementation therapy
     Dosage: 1200 MILLIGRAM, QD
     Route: 065
  4. CALCIUM CARBONATE [Concomitant]
     Active Substance: CALCIUM CARBONATE
     Dosage: 1600 MILLIGRAM, QD
     Route: 065
  5. ALFACALCIDOL [Concomitant]
     Active Substance: ALFACALCIDOL
     Indication: Supplementation therapy
     Dosage: 1.5 MICROGRAM, QD
     Route: 065
  6. ALFACALCIDOL [Concomitant]
     Active Substance: ALFACALCIDOL
     Dosage: 1.0 MICROGRAM, QD
     Route: 065
  7. ALFACALCIDOL [Concomitant]
     Active Substance: ALFACALCIDOL
     Dosage: 1.0 MICROGRAM, QD
     Route: 065

REACTIONS (6)
  - Bone giant cell tumour [Unknown]
  - Osteosclerosis [Unknown]
  - Blood parathyroid hormone increased [Unknown]
  - Off label use [Unknown]
  - Hypophosphataemia [Unknown]
  - Hypocalcaemia [Recovered/Resolved]
